FAERS Safety Report 10732671 (Version 1)
Quarter: 2015Q1

REPORT INFORMATION
  Report Type: Spontaneous
  Country: US (occurrence: US)
  Receive Date: 20150123
  Receipt Date: 20150123
  Transmission Date: 20150721
  Serious: Yes (Hospitalization, Other)
  Sender: FDA-Public Use
  Company Number: US-OTSUKA-US-2015-10095

PATIENT

DRUGS (4)
  1. DIOVAN [Concomitant]
     Active Substance: VALSARTAN
     Indication: BLOOD PRESSURE FLUCTUATION
     Dosage: UNK
     Route: 065
  2. NEXIUM [Concomitant]
     Active Substance: ESOMEPRAZOLE MAGNESIUM
     Indication: GASTROOESOPHAGEAL REFLUX DISEASE
     Dosage: 40 MG MILLIGRAM(S), UNKNOWN
     Route: 065
  3. SYNTHROID [Concomitant]
     Active Substance: LEVOTHYROXINE SODIUM
     Indication: THYROID DISORDER
     Dosage: UNK
     Route: 065
  4. PLETAL [Suspect]
     Active Substance: CILOSTAZOL
     Indication: INTERMITTENT CLAUDICATION
     Dosage: 50 MG MILLIGRAM(S), Q12HR
     Route: 065
     Dates: start: 2005

REACTIONS (8)
  - Underdose [Unknown]
  - Blindness [Unknown]
  - Cardiac flutter [Unknown]
  - Thrombophlebitis superficial [Unknown]
  - Palpitations [Recovered/Resolved]
  - Varicose vein [Unknown]
  - Colitis ischaemic [Unknown]
  - Heart rate increased [Unknown]

NARRATIVE: CASE EVENT DATE: 2005
